FAERS Safety Report 15236504 (Version 6)
Quarter: 2019Q1

REPORT INFORMATION
  Report Type: Spontaneous
  Country: IT (occurrence: IT)
  Receive Date: 20180803
  Receipt Date: 20190213
  Transmission Date: 20190417
  Serious: Yes (Other)
  Sender: FDA-Public Use
  Company Number: IT-AUROBINDO-AUR-APL-2018-038611

PATIENT

DRUGS (8)
  1. METFORMIN [Suspect]
     Active Substance: METFORMIN HYDROCHLORIDE
     Dosage: UNK, 2 ONCE A DAY
     Route: 065
  2. SIMVASTATIN TABLET [Suspect]
     Active Substance: SIMVASTATIN
     Indication: PRODUCT USED FOR UNKNOWN INDICATION
     Dosage: 10 MILLIGRAM, ONCE A DAY,(10 MG, QD)
     Route: 065
  3. SITAGLIPTIN METFORMIN [Suspect]
     Active Substance: METFORMIN HYDROCHLORIDE\SITAGLIPTIN PHOSPHATE
     Dosage: UNK UNK, 1,ONCE A DAY
     Route: 065
  4. ENALAPRIL TABLETS [Suspect]
     Active Substance: ENALAPRIL
     Dosage: UNK, 1, ONCE A DAY
     Route: 065
  5. SITAGLIPTIN METFORMIN [Suspect]
     Active Substance: METFORMIN HYDROCHLORIDE\SITAGLIPTIN PHOSPHATE
     Indication: HYPOGLYCAEMIA
     Dosage: 1 DOSAGE FORM, ONCE A DAY
     Route: 065
  6. METFORMIN [Suspect]
     Active Substance: METFORMIN HYDROCHLORIDE
     Indication: TYPE 2 DIABETES MELLITUS
     Dosage: 1000 MILLIGRAM, TWO TIMES A DAY
     Route: 065
  7. SIMVASTATIN TABLET [Suspect]
     Active Substance: SIMVASTATIN
     Dosage: UNK, 1 ONCE  A DAY
     Route: 065
  8. ENALAPRIL TABLETS [Suspect]
     Active Substance: ENALAPRIL
     Indication: HYPERTENSION
     Dosage: 20 MILLIGRAM, ONCE A DAY
     Route: 065

REACTIONS (6)
  - Weight decreased [Unknown]
  - Hepatic enzyme decreased [Unknown]
  - Hepatic steatosis [Unknown]
  - Non-alcoholic steatohepatitis [Unknown]
  - Glycosylated haemoglobin increased [Unknown]
  - Hepatomegaly [Unknown]
